FAERS Safety Report 8392370 (Version 3)
Quarter: 2013Q1

REPORT INFORMATION
  Report Type: Report from Study
  Country: JP (occurrence: JP)
  Receive Date: 20120206
  Receipt Date: 20130313
  Transmission Date: 20140127
  Serious: Yes (Life-Threatening, Hospitalization, Other)
  Sender: FDA-Public Use
  Company Number: PHHY2012JP008896

PATIENT
  Age: 77 Year
  Sex: Male

DRUGS (8)
  1. VALSARTAN, AMLODIPINE [Suspect]
     Indication: HYPERTENSION
     Dosage: 1 DF, DAILY
     Route: 048
     Dates: start: 20101001
  2. RASILEZ [Concomitant]
     Indication: HYPERTENSION
     Dosage: 150 MG, UNK
     Route: 048
  3. SLOW-K [Concomitant]
     Dosage: 600 MG, UNK
     Route: 048
     Dates: start: 20110811
  4. CRESTOR [Concomitant]
     Indication: DYSLIPIDAEMIA
     Dosage: 5 MG, UNK
     Route: 048
  5. FUROSEMIDE [Concomitant]
     Indication: HYPERTENSION
     Dosage: 40 MG, UNK
     Route: 048
     Dates: start: 20110114
  6. GASTROM [Concomitant]
     Indication: GASTROINTESTINAL DISORDER
     Dosage: 3 G, UNK
     Route: 048
  7. FERO-GRADUMET [Concomitant]
     Dosage: 1 DF, DAILY
     Route: 048
     Dates: start: 20110603
  8. PARIET [Concomitant]
     Dosage: 10 MG, UNK
     Route: 048
     Dates: start: 20110603

REACTIONS (6)
  - Anaemia [Recovered/Resolved]
  - Duodenal ulcer haemorrhage [Recovered/Resolved]
  - Blood potassium decreased [Unknown]
  - Blood urea increased [Unknown]
  - Blood pressure diastolic decreased [Unknown]
  - Faeces discoloured [Unknown]
